FAERS Safety Report 9284641 (Version 2)
Quarter: 2014Q1

REPORT INFORMATION
  Report Type: Spontaneous
  Country: US (occurrence: US)
  Receive Date: 20130513
  Receipt Date: 20140220
  Transmission Date: 20141002
  Serious: Yes (Hospitalization, Other)
  Sender: FDA-Public Use
  Company Number: US-AMGEN-USASP2013032825

PATIENT
  Age: 50 Year
  Sex: Male

DRUGS (2)
  1. ENBREL [Suspect]
     Indication: PSORIASIS
     Dosage: 50 MG, QWK
     Route: 065
     Dates: start: 19990101
  2. ENBREL [Suspect]
     Route: 065

REACTIONS (3)
  - Arthralgia [Recovered/Resolved]
  - Hip arthroplasty [Recovered/Resolved]
  - Necrosis of artery [Not Recovered/Not Resolved]
